FAERS Safety Report 14361292 (Version 1)
Quarter: 2018Q1

REPORT INFORMATION
  Report Type: Spontaneous
  Country: US (occurrence: US)
  Receive Date: 20180108
  Receipt Date: 20180108
  Transmission Date: 20180509
  Serious: Yes (Other)
  Sender: FDA-Public Use
  Company Number: PHHY2017US197047

PATIENT
  Age: 29 Year
  Sex: Female

DRUGS (1)
  1. BUPROPION. [Suspect]
     Active Substance: BUPROPION
     Indication: PRODUCT USED FOR UNKNOWN INDICATION
     Route: 065

REACTIONS (5)
  - Pruritus [Unknown]
  - Skin exfoliation [Unknown]
  - Rash pustular [Unknown]
  - Pyrexia [Unknown]
  - Acute generalised exanthematous pustulosis [Unknown]
